FAERS Safety Report 5851786-0 (Version None)
Quarter: 2008Q3

REPORT INFORMATION
  Report Type: 
  Country: None (occurrence: None)
  Receive Date: 20080811
  Receipt Date: 20080422
  Transmission Date: 20090109
  Serious: Yes (Other)
  Sender: FDA-Public Use
  Company Number: 200811158US

PATIENT
  Age: 72 Year
  Sex: Female
  Weight: 61.36 kg

DRUGS (14)
  1. APIDRA [Suspect]
     Indication: TYPE 2 DIABETES MELLITUS
     Dosage: 8 U/DAY SC
     Route: 058
     Dates: start: 20080223, end: 20080224
  2. LANTUS [Suspect]
     Indication: TYPE 2 DIABETES MELLITUS
     Dosage: 22 U
  3. LANTUS [Suspect]
     Indication: TYPE 2 DIABETES MELLITUS
     Dosage: 18 U
  4. LANTUS [Suspect]
     Indication: TYPE 2 DIABETES MELLITUS
     Dosage: SC
     Route: 058
  5. OPTICLIK GREY [Suspect]
     Indication: TYPE 2 DIABETES MELLITUS
     Dates: start: 20080222
  6. SYNTHROID [Concomitant]
  7. ERGOCALCIFEROL [Concomitant]
  8. ASCORBIC ACID [Concomitant]
  9. TOCOPHEROL CONCENTRATE CAP [Concomitant]
  10. FOLIC ACID [Concomitant]
  11. RETINOL [Concomitant]
  12. VITAMIN B NOS (MULTIPLE VITAMINS) [Concomitant]
  13. CALCIUM [Concomitant]
  14. SELENIUM [Concomitant]

REACTIONS (7)
  - ERYTHEMA [None]
  - HYPERSENSITIVITY [None]
  - HYPOGLYCAEMIA [None]
  - INJECTION SITE ERYTHEMA [None]
  - INJECTION SITE PRURITUS [None]
  - INJECTION SITE RASH [None]
  - PRURITUS [None]
